FAERS Safety Report 9915627 (Version 1)
Quarter: 2014Q1

REPORT INFORMATION
  Report Type: Spontaneous
  Country: IT (occurrence: None)
  Receive Date: 20140218
  Receipt Date: 20140218
  Transmission Date: 20141002
  Serious: Yes (Hospitalization)
  Sender: FDA-Public Use
  Company Number: AUR-APL-2014-01543

PATIENT
  Age: 83 Year
  Sex: Male
  Weight: 94 kg

DRUGS (8)
  1. ATENOLOL (ATENOLOL) [Suspect]
     Indication: HYPERTENSION
     Route: 048
     Dates: start: 20120101, end: 20131207
  2. ANTRA (OMEPRAZOLE) [Concomitant]
  3. CARDIOASPIRIN (ACETYLSALICYLIC ACID) [Concomitant]
  4. ELOPRAM (CITALOPRAM HYDROBROMIDE) [Concomitant]
  5. HIZAAR (HYZAAR) [Concomitant]
  6. SUGUAN (SUGUAN) [Concomitant]
  7. ZOLOFT (SERTRALINE HYDROCHLORIDE) [Concomitant]
  8. DAFLON (DIOSMIN) [Concomitant]

REACTIONS (1)
  - Bradycardia [None]
